FAERS Safety Report 17190191 (Version 1)
Quarter: 2019Q4

REPORT INFORMATION
  Report Type: Spontaneous
  Country: FR (occurrence: FR)
  Receive Date: 20191223
  Receipt Date: 20191223
  Transmission Date: 20200122
  Serious: Yes (Other)
  Sender: FDA-Public Use
  Company Number: FR-TEVA-2019-FR-1155564

PATIENT
  Age: 64 Year
  Sex: Female
  Weight: 99 kg

DRUGS (16)
  1. FUROSEMIDE. [Concomitant]
     Active Substance: FUROSEMIDE
     Dosage: 20 MG, UNK
  2. ESOMEPRAZOLE [ESOMEPRAZOLE SODIUM] [Concomitant]
     Dosage: 1 UNK, STRENGTH: 40 UNITS UNK
  3. METFORMIN HYDROCHLORIDE. [Suspect]
     Active Substance: METFORMIN HYDROCHLORIDE
     Dosage: 850 MILLIGRAM DAILY; 850 MG, QD
  4. AERIUS (DESLORATADINE) [Concomitant]
     Active Substance: DESLORATADINE
  5. L-THYROXIN HENNING [Suspect]
     Active Substance: LEVOTHYROXINE SODIUM
     Indication: HYPOTHYROIDISM
     Dosage: 100 MICROGRAM DAILY; 100 UG, QD, DIVISIBLE TABLETS
     Route: 048
     Dates: start: 20180704
  6. UVEDOSE [Concomitant]
     Active Substance: CHOLECALCIFEROL
  7. DIFFU K [Concomitant]
     Active Substance: POTASSIUM CHLORIDE
     Dosage: 1
  8. LASILIX [FUROSEMIDE] [Concomitant]
     Active Substance: FUROSEMIDE
     Dosage: 20 MG
  9. METFORMIN HYDROCHLORIDE. [Suspect]
     Active Substance: METFORMIN HYDROCHLORIDE
     Indication: DIABETES MELLITUS
     Dosage: 700 MILLIGRAM DAILY; 700 MG, QD
     Dates: start: 1998
  10. STAGID [Concomitant]
     Active Substance: METFORMIN PAMOATE
     Dosage: 3 DOSAGE FORMS DAILY; 3 DF, QD, STRENGTH: 700 UNITS UNK
  11. HYTACAND [Concomitant]
     Active Substance: CANDESARTAN CILEXETIL\HYDROCHLOROTHIAZIDE
     Dosage: 1 DOSAGE FORMS DAILY; 1 DF, QD, STRENGTH: 16/12.5 UNITS UNK
  12. DIFLUCAN [Concomitant]
     Active Substance: FLUCONAZOLE
  13. OROCAL [CALCIUM CARBONATE] [Concomitant]
  14. COTAREG [Concomitant]
     Active Substance: HYDROCHLOROTHIAZIDE\VALSARTAN
  15. LEVOTHYROX [Concomitant]
     Active Substance: LEVOTHYROXINE
     Dosage: 100 UG
     Dates: start: 201701
  16. PROPRANOLOL [Concomitant]
     Active Substance: PROPRANOLOL HYDROCHLORIDE
     Dosage: 1/2 IN MORNING AND 1/4 IN EVENING, STRENGTH: 40 UNITS UNK

REACTIONS (6)
  - Diabetes mellitus [Recovering/Resolving]
  - Constipation [Not Recovered/Not Resolved]
  - Fatigue [Unknown]
  - Anxiety [Unknown]
  - Glycosylated haemoglobin increased [Not Recovered/Not Resolved]
  - Nervousness [Unknown]

NARRATIVE: CASE EVENT DATE: 2018
